FAERS Safety Report 8487060-6 (Version None)
Quarter: 2012Q3

REPORT INFORMATION
  Report Type: 
  Country: None (occurrence: None)
  Receive Date: 20120704
  Receipt Date: 20120628
  Transmission Date: 20120928
  Serious: Yes (Other)
  Sender: FDA-Public Use
  Company Number: PHEH2012US010093

PATIENT
  Sex: Male

DRUGS (15)
  1. NIASPAN [Concomitant]
     Indication: ARTERIAL OCCLUSIVE DISEASE
     Dosage: 1000 MG, QD
  2. ZOLOFT [Concomitant]
     Indication: DEPRESSION
     Dosage: 100 MG, QD
     Route: 048
  3. ASPIRIN [Concomitant]
     Dosage: 1 DF, QD
     Route: 048
  4. FISH OIL [Concomitant]
     Dosage: 1200 MG, TID
  5. AMBIEN [Concomitant]
     Indication: SLEEP DISORDER
     Dosage: 12.5 MG, BID
     Route: 048
  6. CRESTOR [Concomitant]
     Indication: BLOOD CHOLESTEROL ABNORMAL
     Dosage: 40 MG, QD
     Route: 048
  7. XANAX [Concomitant]
     Indication: ANXIETY
     Dosage: 2 MG, BID
     Route: 048
  8. NORVASC [Concomitant]
     Indication: BLOOD PRESSURE
     Dosage: 2.5 MG, BID
     Route: 048
  9. XANAX [Concomitant]
     Indication: ANXIETY
     Dosage: 1 MG, (2-3 A DAY)
     Route: 048
  10. ZESTRIL [Concomitant]
     Dosage: 30 MG, BID
     Route: 048
  11. PLAVIX [Concomitant]
     Indication: BLOOD CHOLESTEROL ABNORMAL
     Dosage: 75 MG, QD
     Route: 048
  12. RITALIN [Suspect]
     Indication: DEPRESSION
     Dosage: UNK UKN, UNK
  13. METHYLPHENIDATE [Concomitant]
     Indication: DEPRESSION
     Dosage: 9 TIMES A DAY
     Route: 048
     Dates: start: 20120510
  14. PROVIGIL [Concomitant]
     Indication: NARCOLEPSY
     Dosage: 200 MG, BID
     Route: 048
  15. TENORETIC [Concomitant]
     Indication: BLOOD PRESSURE
     Dosage: 100/25 MG TWICE A DAY
     Route: 048

REACTIONS (3)
  - CAROTID ARTERY OCCLUSION [None]
  - CEREBROVASCULAR ACCIDENT [None]
  - THERAPEUTIC RESPONSE UNEXPECTED [None]
